FAERS Safety Report 4993469-5 (Version None)
Quarter: 2006Q2

REPORT INFORMATION
  Report Type: 
  Country: None (occurrence: None)
  Receive Date: 20060505
  Receipt Date: 20060404
  Transmission Date: 20061013
  Serious: Yes (Other)
  Sender: FDA-Public Use
  Company Number: MX-BRISTOL-MYERS SQUIBB COMPANY-13335716

PATIENT
  Age: 71 Year
  Sex: Male

DRUGS (4)
  1. CISPLATIN [Suspect]
     Indication: GASTRIC CANCER
     Route: 042
     Dates: start: 20060313, end: 20060313
  2. FLUOROURACIL [Suspect]
     Indication: GASTRIC CANCER
     Route: 042
     Dates: start: 20060313, end: 20060318
  3. KETOROLAC TROMETHAMINE [Concomitant]
     Indication: PAIN
     Route: 060
     Dates: start: 20060326
  4. NYSTATIN [Concomitant]
     Indication: STOMATITIS
     Route: 048
     Dates: start: 20060325

REACTIONS (1)
  - NEUTROPENIA [None]
